FAERS Safety Report 7562383-3 (Version None)
Quarter: 2011Q2

REPORT INFORMATION
  Report Type: 
  Country: None (occurrence: None)
  Receive Date: 20110614
  Receipt Date: 20110601
  Transmission Date: 20111010
  Serious: Yes (Death, Other)
  Sender: FDA-Public Use
  Company Number: 2011MA006678

PATIENT
  Age: 35 Year
  Sex: Male

DRUGS (4)
  1. DULOXETIME HYDROCHLORIDE [Concomitant]
  2. FEVERALL [Suspect]
     Dosage: 1.6 MCG/ML;
  3. HYDROCODONE [Concomitant]
  4. FENTANYL [Concomitant]

REACTIONS (3)
  - ACCIDENTAL DEATH [None]
  - TOXICITY TO VARIOUS AGENTS [None]
  - UNRESPONSIVE TO STIMULI [None]
